FAERS Safety Report 16488986 (Version 2)
Quarter: 2021Q4

REPORT INFORMATION
  Report Type: Spontaneous
  Country: CA (occurrence: CA)
  Receive Date: 20190628
  Receipt Date: 20211112
  Transmission Date: 20220303
  Serious: Yes (Other)
  Sender: FDA-Public Use
  Company Number: CA-AUROBINDO-AUR-APL-2019-035476

PATIENT
  Age: 26 Year
  Sex: Female
  Weight: 68 kg

DRUGS (3)
  1. DULOXETINE [Suspect]
     Active Substance: DULOXETINE
     Indication: Depression
     Dosage: 60 MILLIGRAM, TWO TIMES A DAY
     Route: 048
  2. NUVARING [Suspect]
     Active Substance: ETHINYL ESTRADIOL\ETONOGESTREL
     Indication: Product used for unknown indication
     Dosage: UNK
     Route: 065
  3. NAPROXEN [Concomitant]
     Active Substance: NAPROXEN
     Indication: Product used for unknown indication
     Dosage: UNK
     Route: 065

REACTIONS (11)
  - Affect lability [Recovered/Resolved]
  - Anger [Recovered/Resolved]
  - Condition aggravated [Recovered/Resolved]
  - Crying [Recovered/Resolved]
  - Feelings of worthlessness [Recovered/Resolved]
  - Mood altered [Recovered/Resolved]
  - Negative thoughts [Recovered/Resolved]
  - Negativism [Recovered/Resolved]
  - Screaming [Recovered/Resolved]
  - Suicidal ideation [Recovered/Resolved]
  - Product substitution issue [Recovered/Resolved]
